FAERS Safety Report 20380430 (Version 1)
Quarter: 2022Q1

REPORT INFORMATION
  Report Type: Spontaneous
  Country: US (occurrence: US)
  Receive Date: 20220127
  Receipt Date: 20220127
  Transmission Date: 20220423
  Serious: No
  Sender: FDA-Public Use
  Company Number: US-TAKEDA-2022TUS002658

PATIENT
  Sex: Female

DRUGS (3)
  1. DEXTROAMPHET SACCHARAT, AMPHET ASPARTATE, DEXTROAMPHET SULFATE AND AMP [Suspect]
     Active Substance: AMPHETAMINE ASPARTATE\AMPHETAMINE SULFATE\DEXTROAMPHETAMINE SACCHARATE\DEXTROAMPHETAMINE SULFATE
     Dosage: 5 MILLIGRAM, QD
     Route: 065
  2. LISINOPRIL [Concomitant]
     Active Substance: LISINOPRIL
     Dosage: 10 MILLIGRAM
     Route: 065
  3. LISINOPRIL [Concomitant]
     Active Substance: LISINOPRIL
     Dosage: 12.5 MILLIGRAM
     Route: 065

REACTIONS (6)
  - Heart rate decreased [Unknown]
  - Blister [Unknown]
  - Parainfluenzae virus infection [Unknown]
  - Dermatitis contact [Unknown]
  - Carpal tunnel syndrome [Unknown]
  - Raynaud^s phenomenon [Unknown]
